FAERS Safety Report 7801362-5 (Version None)
Quarter: 2011Q4

REPORT INFORMATION
  Report Type: 
  Country: None (occurrence: None)
  Receive Date: 20111005
  Receipt Date: 20110929
  Transmission Date: 20120403
  Serious: Yes (Death, Hospitalization)
  Sender: FDA-Public Use
  Company Number: 2011001258

PATIENT
  Age: 60 Year
  Sex: Male

DRUGS (1)
  1. TARCEVA [Suspect]
     Indication: PANCREATIC CARCINOMA
     Dosage: 100 MG, UID/QD, ORAL
     Route: 048
     Dates: start: 20110217

REACTIONS (3)
  - DECREASED APPETITE [None]
  - PNEUMONIA [None]
  - RASH [None]
